FAERS Safety Report 5282924-9 (Version None)
Quarter: 2007Q2

REPORT INFORMATION
  Report Type: 
  Country: None (occurrence: None)
  Receive Date: 20070402
  Receipt Date: 20070319
  Transmission Date: 20071010
  Serious: Yes (Hospitalization)
  Sender: FDA-Public Use
  Company Number: EM2006-0340

PATIENT
  Age: 44 Year
  Sex: Female
  Weight: 55 kg

DRUGS (10)
  1. PROLEUKIN [Suspect]
     Indication: HIV INFECTION
     Dosage: 6 MIU, UNK
     Dates: start: 20060213, end: 20060217
  2. PROLEUKIN [Suspect]
     Dosage: 6 MIU, UNK
     Dates: start: 20060410, end: 20060414
  3. PROLEUKIN [Suspect]
     Dosage: 6 MIU, UNK
     Dates: start: 20060612, end: 20060616
  4. EMTRIVA [Concomitant]
  5. VIDEX [Concomitant]
  6. SUSTIVA [Concomitant]
  7. PROZAC [Concomitant]
  8. ACETYLSALICYLIC ACID SRT [Concomitant]
  9. ATARAX [Concomitant]
  10. CETIRIZINE HCL [Concomitant]

REACTIONS (5)
  - COUGH [None]
  - INFLUENZA LIKE ILLNESS [None]
  - PRURITUS [None]
  - PYREXIA [None]
  - URTICARIA [None]
